FAERS Safety Report 10024907 (Version 2)
Quarter: 2016Q3

REPORT INFORMATION
  Report Type: Spontaneous
  Country: US (occurrence: US)
  Receive Date: 20140320
  Receipt Date: 20160916
  Transmission Date: 20161108
  Serious: Yes (Other)
  Sender: FDA-Public Use
  Company Number: US-BAYER-2014-040228

PATIENT
  Sex: Female

DRUGS (1)
  1. MIRENA [Suspect]
     Active Substance: LEVONORGESTREL
     Dosage: 20 MCG/24HR, CONT
     Route: 015
     Dates: start: 2014

REACTIONS (6)
  - Vaginal haemorrhage [None]
  - Flatulence [None]
  - Device use issue [None]
  - Post procedural haemorrhage [None]
  - Diarrhoea [None]
  - Abdominal distension [None]
